FAERS Safety Report 7397830 (Version 4)
Quarter: 2013Q3

REPORT INFORMATION
  Report Type: Spontaneous
  Country: US (occurrence: US)
  Receive Date: 20100524
  Receipt Date: 20130807
  Transmission Date: 20140515
  Serious: Yes (Life-Threatening, Other)
  Sender: FDA-Public Use
  Company Number: US-PFIZER INC-2010060163

PATIENT
  Age: 63 Year
  Sex: Female
  Weight: 94.79 kg

DRUGS (16)
  1. TIKOSYN [Suspect]
     Indication: ATRIAL FIBRILLATION
     Dosage: 500 UG, 2X/DAY
     Route: 048
     Dates: start: 2007
  2. WELCHOL [Interacting]
     Indication: HYPERLIPIDAEMIA
     Dosage: 625 MG, 2X/DAY
     Route: 048
     Dates: start: 20091127
  3. WELCHOL [Interacting]
     Indication: HYPERCHOLESTEROLAEMIA
     Dosage: 625 MG, 4X/DAY
     Dates: end: 2010
  4. WELCHOL [Interacting]
     Dosage: 1875 MG, 2X/DAY
  5. ORLISTAT [Concomitant]
     Dosage: FREQUENCY: 2X/DAY,
  6. BENICAR [Concomitant]
  7. VITACAL [Concomitant]
  8. COUMADINE [Concomitant]
  9. DIGOXIN [Concomitant]
  10. MULTIVITAMINS [Concomitant]
  11. K-DUR [Concomitant]
  12. LASIX [Concomitant]
  13. OMEGA-3 MARINE TRIGLYCERIDES [Concomitant]
     Dosage: FREQUENCY: 2X/DAY,
  14. OMEPRAZOLE [Concomitant]
  15. SULAR [Concomitant]
  16. TOPROL XL [Concomitant]
     Dosage: FREQUENCY: 2X/DAY,

REACTIONS (2)
  - Long QT syndrome [Recovered/Resolved]
  - Drug interaction [Recovered/Resolved]
